FAERS Safety Report 5695146-4 (Version None)
Quarter: 2008Q2

REPORT INFORMATION
  Report Type: 
  Country: None (occurrence: None)
  Receive Date: 20080404
  Receipt Date: 20080324
  Transmission Date: 20081010
  Serious: Yes (Other)
  Sender: FDA-Public Use
  Company Number: US-PFIZER INC-2008026903

PATIENT
  Sex: Female
  Weight: 69.4 kg

DRUGS (10)
  1. LYRICA [Suspect]
     Indication: DIABETIC NEUROPATHY
     Dates: start: 20070101, end: 20080317
  2. LYRICA [Suspect]
     Indication: FIBROMYALGIA
  3. CHANTIX [Suspect]
     Indication: SMOKING CESSATION THERAPY
     Dates: start: 20080101, end: 20080301
  4. AMITRIPTYLINE HCL [Concomitant]
  5. ACIPHEX [Concomitant]
  6. LIBRIUM [Concomitant]
  7. LIBRAX [Concomitant]
  8. PERIACTIN [Concomitant]
  9. ZANAFLEX [Concomitant]
  10. INSULIN [Concomitant]

REACTIONS (4)
  - ABNORMAL BEHAVIOUR [None]
  - ALANINE AMINOTRANSFERASE INCREASED [None]
  - ASPARTATE AMINOTRANSFERASE INCREASED [None]
  - HAEMOGLOBIN INCREASED [None]
